FAERS Safety Report 19306588 (Version 3)
Quarter: 2021Q3

REPORT INFORMATION
  Report Type: Report from Study
  Country: US (occurrence: US)
  Receive Date: 20210526
  Receipt Date: 20210824
  Transmission Date: 20211014
  Serious: No
  Sender: FDA-Public Use
  Company Number: NVSC2021US110891

PATIENT
  Sex: Female

DRUGS (1)
  1. KESIMPTA [Suspect]
     Active Substance: OFATUMUMAB
     Indication: RELAPSING MULTIPLE SCLEROSIS
     Dosage: UNK, QMO(BENEATH THE SKIN,USUALLY VIA INJECTION)
     Route: 058
     Dates: start: 20210406

REACTIONS (4)
  - Injection site muscle weakness [Unknown]
  - Feeling cold [Unknown]
  - Influenza like illness [Unknown]
  - Chills [Unknown]
